FAERS Safety Report 13528652 (Version 1)
Quarter: 2017Q2

REPORT INFORMATION
  Report Type: Spontaneous
  Country: US (occurrence: US)
  Receive Date: 20170509
  Receipt Date: 20170509
  Transmission Date: 20170830
  Serious: Yes (Hospitalization, Other)
  Sender: FDA-Public Use
  Company Number: US-BAYER-2017-086025

PATIENT
  Age: 89 Year
  Sex: Male

DRUGS (2)
  1. BAYER ASPIRIN [Suspect]
     Active Substance: ASPIRIN
     Dosage: 1 DF, UNK
  2. RIVAROXABAN [Interacting]
     Active Substance: RIVAROXABAN

REACTIONS (4)
  - Haemoptysis [Unknown]
  - Haemothorax [Unknown]
  - Drug interaction [None]
  - Dyspnoea [Unknown]
